FAERS Safety Report 5929806-4 (Version None)
Quarter: 2008Q4

REPORT INFORMATION
  Report Type: 
  Country: None (occurrence: None)
  Receive Date: 20081024
  Receipt Date: 20081013
  Transmission Date: 20090506
  Serious: Yes (Hospitalization, Other)
  Sender: FDA-Public Use
  Company Number: US-PFIZER INC-2008048377

PATIENT
  Sex: Male
  Weight: 113.4 kg

DRUGS (1)
  1. BEXTRA [Suspect]
     Indication: ARTHRITIS

REACTIONS (4)
  - DEPRESSION [None]
  - MYOCARDIAL INFARCTION [None]
  - RENAL DISORDER [None]
  - STEVENS-JOHNSON SYNDROME [None]
